FAERS Safety Report 4396165-0 (Version None)
Quarter: 2004Q3

REPORT INFORMATION
  Report Type: 
  Country: None (occurrence: None)
  Receive Date: 20040713
  Receipt Date: 20040528
  Transmission Date: 20050211
  Serious: Yes (Death)
  Sender: FDA-Public Use
  Company Number: PHBS2004JP07044

PATIENT
  Age: 77 Year
  Sex: Male
  Weight: 68 kg

DRUGS (8)
  1. DIOVAN [Suspect]
     Dosage: 160 M / TWO DIVIDED DOSES
     Route: 048
     Dates: start: 20030125, end: 20040430
  2. DIOVAN [Suspect]
     Dosage: 240 MG / THREE DIVIDED DOSES
     Route: 048
     Dates: start: 20040501
  3. KREMEZIN [Concomitant]
     Dosage: 6 G, UNK
     Route: 048
     Dates: end: 20040510
  4. SELOKEN [Concomitant]
     Dosage: 120 MG, UNK
     Route: 048
     Dates: start: 19980404, end: 20040510
  5. ALLOPURINOL [Concomitant]
     Dosage: 2 DF, UNK
     Route: 048
     Dates: end: 20040510
  6. ISOSORBIDE MONONITRATE [Concomitant]
     Route: 048
     Dates: end: 20040510
  7. NORVASC [Concomitant]
     Indication: HYPERTENSION
     Route: 048
     Dates: end: 20040430
  8. CONIEL [Concomitant]
     Indication: HYPERTENSION
     Dosage: UNK, UNK
     Dates: start: 20040501, end: 20040510

REACTIONS (5)
  - BLOOD POTASSIUM DECREASED [None]
  - CARDIOVASCULAR DISORDER [None]
  - CEREBRAL INFARCTION [None]
  - HYPOAESTHESIA [None]
  - MYOCARDIAL INFARCTION [None]
